FAERS Safety Report 8724098 (Version 2)
Quarter: 2012Q4

REPORT INFORMATION
  Report Type: 
  Country: US (occurrence: US)
  Receive Date: 20120815
  Receipt Date: 20120828
  Transmission Date: 20130627
  Serious: Yes (Other)
  Sender: FDA-Public Use
  Company Number: US-PFIZER INC-2012198884

PATIENT
  Sex: Male

DRUGS (2)
  1. LIPITOR [Suspect]
     Dosage: 10 mg, UNK
  2. LIPITOR [Suspect]
     Dosage: 20 mg, UNK

REACTIONS (1)
  - Deafness [Unknown]
